FAERS Safety Report 19215351 (Version 1)
Quarter: 2021Q2

REPORT INFORMATION
  Report Type: Spontaneous
  Country: CN (occurrence: CN)
  Receive Date: 20210505
  Receipt Date: 20210505
  Transmission Date: 20210717
  Serious: Yes (Other)
  Sender: FDA-Public Use
  Company Number: CN-ROCHE-2818153

PATIENT
  Age: 73 Year
  Sex: Female

DRUGS (2)
  1. XELODA [Suspect]
     Active Substance: CAPECITABINE
     Indication: MUCINOUS ADENOCARCINOMA OF APPENDIX
     Route: 048
     Dates: start: 20210312, end: 20210327
  2. OXALIPLATIN. [Suspect]
     Active Substance: OXALIPLATIN
     Indication: MUCINOUS ADENOCARCINOMA OF APPENDIX
     Route: 041
     Dates: start: 20210312, end: 20210312

REACTIONS (2)
  - Renal impairment [Recovering/Resolving]
  - Off label use [Unknown]

NARRATIVE: CASE EVENT DATE: 20210406
